FAERS Safety Report 7267542 (Version 2)
Quarter: 2014Q3

REPORT INFORMATION
  Report Type: Spontaneous
  Country: US (occurrence: None)
  Receive Date: 20100119
  Receipt Date: 20140701
  Transmission Date: 20150326
  Serious: Yes (Hospitalization, Other)
  Sender: FDA-Public Use
  Company Number: 2010S1000135

PATIENT
  Age: 61 Year
  Sex: Female
  Weight: 127.01 kg

DRUGS (6)
  1. APIDRA [Concomitant]
     Active Substance: INSULIN GLULISINE
  2. DIOVAN [Concomitant]
     Active Substance: VALSARTAN
  3. LANTUS [Concomitant]
     Active Substance: INSULIN GLARGINE
  4. FORTAMET ER (METFORMIN HYDROCHLORIDE) [Concomitant]
  5. MULTIVITAMIN (VITAMINS NOS) [Concomitant]
     Active Substance: VITAMINS
  6. PHOSPHO-SODA [Suspect]
     Active Substance: SODIUM PHOSPHATE, DIBASIC\SODIUM PHOSPHATE, MONOBASIC
     Indication: LAPAROSCOPY
     Dosage: PO
     Route: 048
     Dates: start: 20070312, end: 20070312

REACTIONS (18)
  - Dry skin [None]
  - Microalbuminuria [None]
  - Hypovolaemia [None]
  - Vitamin D deficiency [None]
  - Fatigue [None]
  - Abdominal discomfort [None]
  - Hepatic steatosis [None]
  - Blood potassium increased [None]
  - Malaise [None]
  - Hypoxia [None]
  - Renal failure chronic [None]
  - Blood calcium increased [None]
  - Blood phosphorus increased [None]
  - Alopecia [None]
  - Atelectasis [None]
  - Bronchitis [None]
  - Tachypnoea [None]
  - Pulmonary oedema [None]

NARRATIVE: CASE EVENT DATE: 20070313
